FAERS Safety Report 7768133-X (Version None)
Quarter: 2011Q3

REPORT INFORMATION
  Report Type: 
  Country: None (occurrence: None)
  Receive Date: 20110922
  Receipt Date: 20110912
  Transmission Date: 20111222
  Serious: Yes (Other)
  Sender: FDA-Public Use
  Company Number: IT-GENENTECH-324429

PATIENT

DRUGS (1)
  1. RITUXIMAB [Suspect]
     Indication: CRYOGLOBULINAEMIA
     Dosage: 250 MG/M2, BID
     Route: 042

REACTIONS (1)
  - THROMBOPHLEBITIS [None]
